FAERS Safety Report 9322005 (Version 1)
Quarter: 2013Q2

REPORT INFORMATION
  Report Type: Spontaneous
  Country: US (occurrence: US)
  Receive Date: 20130531
  Receipt Date: 20130531
  Transmission Date: 20140414
  Serious: Yes (Hospitalization, Other)
  Sender: FDA-Public Use
  Company Number: US-BANPHARM-20131369

PATIENT
  Age: 4 Year
  Sex: Female

DRUGS (5)
  1. VALPROIC ACID UNKNOWN PRODUCT [Suspect]
     Indication: CONVULSION
     Dosage: 60 MG/KG, QD,
     Route: 048
  2. LACOSAMIDE [Suspect]
     Indication: CONVULSION
     Dosage: 25 MG, BID,
  3. LACOSAMIDE [Suspect]
     Dosage: 50 MG, BID
  4. CARBAMAZEPINE [Concomitant]
  5. OXCARBAZEPINE [Concomitant]

REACTIONS (6)
  - Convulsion [Unknown]
  - Bone marrow failure [Unknown]
  - Hyperammonaemic encephalopathy [Unknown]
  - Toxicity to various agents [Unknown]
  - Drug interaction [Unknown]
  - Pyrexia [Unknown]
